FAERS Safety Report 7603209-9 (Version None)
Quarter: 2011Q3

REPORT INFORMATION
  Report Type: 
  Country: None (occurrence: None)
  Receive Date: 20110712
  Receipt Date: 20110624
  Transmission Date: 20111222
  Serious: No
  Sender: FDA-Public Use
  Company Number: US-B.I. PHARMACEUTICALS,INC./RIDGEFIELD-2011-BP-16361BP

PATIENT
  Sex: Female

DRUGS (10)
  1. MECLIZINE [Concomitant]
     Indication: VERTIGO
     Route: 048
  2. PRADAXA [Suspect]
     Indication: ATRIAL FIBRILLATION
     Dosage: 300 MG
     Route: 048
     Dates: start: 20101201, end: 20101201
  3. LASIX [Concomitant]
     Dosage: 40 MG
     Route: 048
  4. POTASSIUM [Concomitant]
     Dosage: 10 MEQ
     Route: 048
  5. DILTIAZEM [Concomitant]
     Indication: ATRIAL FIBRILLATION
     Dosage: 240 MG
     Route: 048
  6. FLAX SEED OIL [Concomitant]
     Route: 048
  7. COUMADIN [Concomitant]
     Indication: ATRIAL FIBRILLATION
     Dosage: 6.25 MG
     Route: 048
     Dates: start: 20101201
  8. LOPRESSOR [Concomitant]
     Indication: HYPERTENSION
     Dosage: 100 MG
     Route: 048
  9. SIMVASTATIN [Concomitant]
     Indication: BLOOD CHOLESTEROL INCREASED
     Dosage: 20 MG
     Route: 048
  10. ATIVAN [Concomitant]
     Indication: ATRIAL FIBRILLATION
     Dosage: 2 MG
     Route: 048

REACTIONS (1)
  - HIATUS HERNIA [None]
